FAERS Safety Report 9748290 (Version 3)
Quarter: 2014Q1

REPORT INFORMATION
  Report Type: Spontaneous
  Country: ES (occurrence: ES)
  Receive Date: 20131212
  Receipt Date: 20140130
  Transmission Date: 20141002
  Serious: Yes (Other)
  Sender: FDA-Public Use
  Company Number: ES-JNJFOC-20131203139

PATIENT
  Sex: Male

DRUGS (1)
  1. ZYTIGA [Suspect]
     Indication: PROSTATE CANCER METASTATIC
     Route: 048

REACTIONS (5)
  - Hyperkalaemia [Unknown]
  - Oedema [Unknown]
  - Drug intolerance [Unknown]
  - Blood pressure increased [Unknown]
  - Asthenia [Unknown]
